FAERS Safety Report 12265504 (Version 3)
Quarter: 2016Q2

REPORT INFORMATION
  Report Type: Spontaneous
  Country: US (occurrence: US)
  Receive Date: 20160413
  Receipt Date: 20160413
  Transmission Date: 20160815
  Serious: Yes (Other)
  Sender: FDA-Public Use
  Company Number: US-JNJFOC-20160409877

PATIENT
  Age: 81 Year
  Sex: Female
  Weight: 65.77 kg

DRUGS (5)
  1. XARELTO [Suspect]
     Active Substance: RIVAROXABAN
     Indication: ATRIAL FIBRILLATION
     Route: 048
     Dates: start: 20160405
  2. XARELTO [Suspect]
     Active Substance: RIVAROXABAN
     Indication: CEREBROVASCULAR ACCIDENT PROPHYLAXIS
     Route: 048
     Dates: start: 20160405
  3. ELIQUIS [Suspect]
     Active Substance: APIXABAN
     Indication: ATRIAL FIBRILLATION
     Route: 048
     Dates: start: 2016, end: 2016
  4. XARELTO [Suspect]
     Active Substance: RIVAROXABAN
     Indication: ATRIAL FIBRILLATION
     Dosage: STARTED AROUND 2008 OR 2009
     Route: 048
     Dates: end: 201602
  5. XARELTO [Suspect]
     Active Substance: RIVAROXABAN
     Indication: CEREBROVASCULAR ACCIDENT PROPHYLAXIS
     Dosage: STARTED AROUND 2008 OR 2009
     Route: 048
     Dates: end: 201602

REACTIONS (13)
  - Joint injury [Recovered/Resolved]
  - Off label use [Unknown]
  - Venous haemorrhage [Recovered/Resolved]
  - Gastric disorder [Recovered/Resolved]
  - Inappropriate schedule of drug administration [Recovered/Resolved]
  - Feeling abnormal [Unknown]
  - Wound haemorrhage [Recovered/Resolved]
  - Visual impairment [Unknown]
  - Vascular rupture [Recovered/Resolved]
  - Venous occlusion [Unknown]
  - Cognitive disorder [Unknown]
  - Nervousness [Unknown]
  - Body height decreased [Unknown]

NARRATIVE: CASE EVENT DATE: 2016
